FAERS Safety Report 9086272 (Version 1)
Quarter: 2013Q1

REPORT INFORMATION
  Report Type: Report from Study
  Country: US (occurrence: US)
  Receive Date: 20130131
  Receipt Date: 20130131
  Transmission Date: 20140127
  Serious: Yes (Hospitalization, Other)
  Sender: FDA-Public Use
  Company Number: US-ABBOTT-13P-163-1038834-00

PATIENT
  Sex: Male
  Weight: 89.44 kg

DRUGS (4)
  1. HUMIRA [Suspect]
     Indication: CROHN^S DISEASE
     Route: 058
     Dates: start: 2008, end: 201211
  2. HUMIRA [Suspect]
     Route: 058
     Dates: start: 201211
  3. LISINOPRIL [Concomitant]
     Indication: HYPERTENSION
  4. SIMVASTATIN [Concomitant]
     Indication: PROPHYLAXIS

REACTIONS (4)
  - Small intestinal obstruction [Recovered/Resolved]
  - Abdominal pain [Recovered/Resolved]
  - Incorrect storage of drug [Not Recovered/Not Resolved]
  - Poor quality drug administered [Not Recovered/Not Resolved]
